FAERS Safety Report 10870897 (Version 2)
Quarter: 2015Q1

REPORT INFORMATION
  Report Type: Report from Study
  Country: GB (occurrence: GB)
  Receive Date: 20150226
  Receipt Date: 20150227
  Transmission Date: 20150721
  Serious: Yes (Other)
  Sender: FDA-Public Use
  Company Number: GB-ABBVIE-15K-167-1349717-00

PATIENT
  Age: 56 Year
  Sex: Male

DRUGS (2)
  1. HUMIRA [Suspect]
     Active Substance: ADALIMUMAB
     Indication: ANKYLOSING SPONDYLITIS
     Dosage: 1 INJECTION
     Route: 050
     Dates: start: 201210, end: 2014
  2. HUMIRA [Suspect]
     Active Substance: ADALIMUMAB
     Dosage: 1 INJECTION
     Route: 050
     Dates: start: 2014

REACTIONS (9)
  - Pain [Unknown]
  - Haemorrhage [Unknown]
  - Pneumonia [Recovered/Resolved]
  - Abscess [Unknown]
  - Mobility decreased [Unknown]
  - Arthropathy [Unknown]
  - Pain in extremity [Unknown]
  - Therapeutic response unexpected [Unknown]
  - Insomnia [Unknown]

NARRATIVE: CASE EVENT DATE: 201402
